FAERS Safety Report 15025248 (Version 1)
Quarter: 2018Q2

REPORT INFORMATION
  Report Type: Report from Study
  Country: US (occurrence: US)
  Receive Date: 20180618
  Receipt Date: 20180618
  Transmission Date: 20180711
  Serious: Yes (Hospitalization)
  Sender: FDA-Public Use
  Company Number: US-ACTELION-A-NJ2018-173689

PATIENT
  Age: 75 Year
  Sex: Male
  Weight: 92.52 kg

DRUGS (1)
  1. OPSUMIT [Suspect]
     Active Substance: MACITENTAN
     Indication: PULMONARY ARTERIAL HYPERTENSION
     Dosage: 10 MG, QD
     Route: 048

REACTIONS (4)
  - Elbow operation [Unknown]
  - Impaired healing [Unknown]
  - Peripheral swelling [Unknown]
  - Localised infection [Unknown]

NARRATIVE: CASE EVENT DATE: 201804
